FAERS Safety Report 20950613 (Version 3)
Quarter: 2023Q1

REPORT INFORMATION
  Report Type: Spontaneous
  Country: US (occurrence: US)
  Receive Date: 20220613
  Receipt Date: 20230125
  Transmission Date: 20230417
  Serious: No
  Sender: FDA-Public Use
  Company Number: US-KYOWAKIRIN-2022BKK008774

PATIENT

DRUGS (3)
  1. CRYSVITA [Suspect]
     Active Substance: BUROSUMAB-TWZA
     Indication: Phosphorus metabolism disorder
     Dosage: 90 MG, 1X/4 WEEKS
     Route: 058
     Dates: start: 202204
  2. CRYSVITA [Suspect]
     Active Substance: BUROSUMAB-TWZA
     Dosage: 90 MG, 1X/4 WEEKS
     Route: 042
  3. CRYSVITA [Suspect]
     Active Substance: BUROSUMAB-TWZA
     Dosage: 90 MG, 1X/MONTH
     Route: 042

REACTIONS (8)
  - Depression [Unknown]
  - Anxiety [Unknown]
  - Nasopharyngitis [Unknown]
  - Staphylococcal infection [Unknown]
  - Influenza [Unknown]
  - Product use in unapproved indication [Not Recovered/Not Resolved]
  - Gastrectomy [Unknown]
  - Incorrect route of product administration [Not Recovered/Not Resolved]

NARRATIVE: CASE EVENT DATE: 20220401
